FAERS Safety Report 9958106 (Version 1)
Quarter: 2014Q1

REPORT INFORMATION
  Report Type: Report from Study
  Country: US (occurrence: US)
  Receive Date: 20140304
  Receipt Date: 20140304
  Transmission Date: 20141002
  Serious: No
  Sender: FDA-Public Use
  Company Number: US-ABBVIE-13P-163-1096023-00

PATIENT
  Age: 36 Year
  Sex: Male
  Weight: 105.33 kg

DRUGS (1)
  1. HUMIRA [Suspect]
     Indication: CROHN^S DISEASE
     Dosage: 160MG LOADING DOSE
     Dates: start: 20130527, end: 20130527

REACTIONS (3)
  - Injection site pain [Recovered/Resolved]
  - Vomiting [Unknown]
  - Nausea [Unknown]
